FAERS Safety Report 5719809-7 (Version None)
Quarter: 2008Q2

REPORT INFORMATION
  Report Type: 
  Country: None (occurrence: None)
  Receive Date: 20080428
  Receipt Date: 20080424
  Transmission Date: 20081010
  Serious: Yes (Disabling)
  Sender: FDA-Public Use
  Company Number: RO-ASTRAZENECA-2008SE02113

PATIENT
  Age: 67 Year
  Sex: Female

DRUGS (3)
  1. BUPIVACAINUM [Suspect]
     Indication: SPINAL ANAESTHESIA
     Route: 037
     Dates: start: 20080401, end: 20080401
  2. ATROPINUM [Concomitant]
     Indication: BRADYCARDIA
     Route: 042
  3. MIDAZOLAMUM [Concomitant]
     Route: 042

REACTIONS (4)
  - BRADYCARDIA [None]
  - CARDIAC ARREST [None]
  - HYPOTENSION [None]
  - LOSS OF CONSCIOUSNESS [None]
